FAERS Safety Report 5707492-6 (Version None)
Quarter: 2008Q2

REPORT INFORMATION
  Report Type: 
  Country: None (occurrence: None)
  Receive Date: 20080416
  Receipt Date: 20080407
  Transmission Date: 20081010
  Serious: Yes (Life-Threatening)
  Sender: FDA-Public Use
  Company Number: JP-PFIZER INC-2008029828

PATIENT
  Sex: Male

DRUGS (1)
  1. LIPITOR [Suspect]
     Indication: HYPERLIPIDAEMIA
     Dosage: FREQ:1(DF) QD
     Route: 048
     Dates: start: 20070727, end: 20070826

REACTIONS (13)
  - ANXIETY [None]
  - DEPRESSION [None]
  - EAR DISCOMFORT [None]
  - EUSTACHIAN TUBE OBSTRUCTION [None]
  - FEELING ABNORMAL [None]
  - FLUID RETENTION [None]
  - HYPOCHOLESTEROLAEMIA [None]
  - MALAISE [None]
  - MOBILITY DECREASED [None]
  - PSYCHIATRIC SYMPTOM [None]
  - SUICIDAL IDEATION [None]
  - WATER INTOXICATION [None]
  - WEIGHT DECREASED [None]
